FAERS Safety Report 23185532 (Version 1)
Quarter: 2023Q4

REPORT INFORMATION
  Report Type: Spontaneous
  Country: US (occurrence: US)
  Receive Date: 20231115
  Receipt Date: 20231115
  Transmission Date: 20240110
  Serious: No
  Sender: FDA-Public Use
  Company Number: US-drreddys-LIT/USA/23/0183385

PATIENT
  Age: 3 Year
  Sex: Male

DRUGS (2)
  1. CLONIDINE [Suspect]
     Active Substance: CLONIDINE
     Indication: Agitation
     Dosage: UNK
  2. CLONIDINE [Suspect]
     Active Substance: CLONIDINE
     Indication: Irritability

REACTIONS (1)
  - Drug ineffective [Unknown]
